FAERS Safety Report 6980047-1 (Version None)
Quarter: 2010Q3

REPORT INFORMATION
  Report Type: 
  Country: None (occurrence: None)
  Receive Date: 20100914
  Receipt Date: 20100902
  Transmission Date: 20110219
  Serious: Yes (Other)
  Sender: FDA-Public Use
  Company Number: AU-PFIZER INC-2010110484

PATIENT
  Sex: Female

DRUGS (2)
  1. SALAZOPYRIN [Suspect]
     Indication: ARTHRITIS
     Dosage: 500 MG, 2X/DAY
  2. CABASER [Concomitant]
     Indication: PARKINSON'S DISEASE
     Dosage: UNK

REACTIONS (5)
  - ANOSMIA [None]
  - CHEST X-RAY ABNORMAL [None]
  - DYSPNOEA [None]
  - FOOD AVERSION [None]
  - SWELLING FACE [None]
